FAERS Safety Report 10664091 (Version 7)
Quarter: 2016Q4

REPORT INFORMATION
  Report Type: Report from Study
  Country: BR (occurrence: BR)
  Receive Date: 20141219
  Receipt Date: 20161103
  Transmission Date: 20170206
  Serious: Yes (Hospitalization, Other)
  Sender: FDA-Public Use
  Company Number: PHHY2014BR057510

PATIENT
  Sex: Female
  Weight: 75 kg

DRUGS (7)
  1. LODIPIL [Concomitant]
     Indication: BLOOD PRESSURE INCREASED
     Dosage: 1 DF, BID (1 TABLET/MORNING, 1 TABLET/NIGHT)
     Route: 065
  2. SANDOSTATIN LAR DEPOT [Suspect]
     Active Substance: OCTREOTIDE ACETATE
     Indication: ACROMEGALY
     Dosage: 30 MG, QMO (EVERY 28 DAYS, ONCE A MONTH)
     Route: 030
  3. SERTRALINE [Concomitant]
     Active Substance: SERTRALINE HYDROCHLORIDE
     Indication: PRODUCT USED FOR UNKNOWN INDICATION
     Route: 065
  4. PURAN [Concomitant]
     Active Substance: LEVOTHYROXINE SODIUM
     Indication: HYPERTHYROIDISM
     Dosage: 1 DF, QD
     Route: 065
  5. VASOPRIL [Concomitant]
     Active Substance: FOSINOPRIL
     Indication: BLOOD PRESSURE INCREASED
     Dosage: 1 DF, BID (1 TABLET/MORNING, 1 TABLET/NIGHT)
     Route: 065
  6. AMLODIPINE [Concomitant]
     Active Substance: AMLODIPINE BESYLATE
     Indication: HYPERTENSION
     Dosage: 2 DF, QD
     Route: 065
  7. PROPRANOLOL [Concomitant]
     Active Substance: PROPRANOLOL\PROPRANOLOL HYDROCHLORIDE
     Indication: BLOOD PRESSURE INCREASED
     Dosage: 1 DF, BID
     Route: 065

REACTIONS (20)
  - Renal colic [Recovering/Resolving]
  - Osteoarthritis [Recovering/Resolving]
  - Psychiatric symptom [Recovering/Resolving]
  - Arthralgia [Not Recovered/Not Resolved]
  - Nerve injury [Unknown]
  - Eye disorder [Unknown]
  - Gait disturbance [Unknown]
  - Bone pain [Not Recovered/Not Resolved]
  - Nephrolithiasis [Unknown]
  - Swelling [Recovering/Resolving]
  - Bone deformity [Not Recovered/Not Resolved]
  - Pain in extremity [Not Recovered/Not Resolved]
  - Memory impairment [Unknown]
  - Malaise [Unknown]
  - Pain [Not Recovered/Not Resolved]
  - Musculoskeletal stiffness [Unknown]
  - Inappropriate schedule of drug administration [Unknown]
  - Peripheral swelling [Recovering/Resolving]
  - Injection site pain [Recovering/Resolving]
  - Spinal pain [Unknown]
